FAERS Safety Report 16023623 (Version 1)
Quarter: 2019Q1

REPORT INFORMATION
  Report Type: Report from Study
  Country: US (occurrence: US)
  Receive Date: 20190301
  Receipt Date: 20190301
  Transmission Date: 20190418
  Serious: Yes (Hospitalization, Other)
  Sender: FDA-Public Use
  Company Number: US-BIOGEN-2019BI00701977

PATIENT
  Sex: Female

DRUGS (2)
  1. ARMODAFINIL. [Concomitant]
     Active Substance: ARMODAFINIL
     Indication: PRODUCT USED FOR UNKNOWN INDICATION
     Route: 065
  2. TECFIDERA [Suspect]
     Active Substance: DIMETHYL FUMARATE
     Indication: MULTIPLE SCLEROSIS
     Dosage: MAINTENANCE DOSE
     Route: 048

REACTIONS (8)
  - Lung neoplasm malignant [Unknown]
  - Product dose omission [Unknown]
  - Daydreaming [Unknown]
  - Fatigue [Unknown]
  - Paraesthesia [Unknown]
  - Erythema [Unknown]
  - Pain [Unknown]
  - Feeling hot [Unknown]
